FAERS Safety Report 6173046-3 (Version None)
Quarter: 2009Q2

REPORT INFORMATION
  Report Type: 
  Country: None (occurrence: None)
  Receive Date: 20090430
  Receipt Date: 20090421
  Transmission Date: 20091009
  Serious: Yes (Hospitalization, Other)
  Sender: FDA-Public Use
  Company Number: US-AMGEN-QUU342300

PATIENT
  Sex: Female
  Weight: 172.5 kg

DRUGS (1)
  1. ENBREL [Suspect]
     Indication: PSORIASIS
     Route: 058
     Dates: start: 20070709, end: 20080324

REACTIONS (6)
  - CELLULITIS [None]
  - INFECTION [None]
  - LOWER RESPIRATORY TRACT INFECTION [None]
  - OPEN WOUND [None]
  - PSORIASIS [None]
  - UPPER RESPIRATORY TRACT INFECTION [None]
